FAERS Safety Report 8150968-5 (Version None)
Quarter: 2012Q1

REPORT INFORMATION
  Report Type: 
  Country: None (occurrence: None)
  Receive Date: 20120220
  Receipt Date: 20120209
  Transmission Date: 20120608
  Serious: Yes (Other)
  Sender: FDA-Public Use
  Company Number: AU-COVIDIEN/TYCO HEALTHCARE/MALLINCKRODT-T201200594

PATIENT
  Age: 73 Year
  Sex: Female

DRUGS (2)
  1. RESTORIL [Suspect]
     Indication: PRODUCT USED FOR UNKNOWN INDICATION
     Dosage: 20 MG, QD ON ADMISSION
  2. RESTORIL [Suspect]
     Dosage: 40 MG, QD FOR FORTY YEARS
     Route: 048

REACTIONS (2)
  - CATATONIA [None]
  - WITHDRAWAL SYNDROME [None]
